FAERS Safety Report 22314544 (Version 1)
Quarter: 2023Q2

REPORT INFORMATION
  Report Type: Spontaneous
  Country: US (occurrence: US)
  Receive Date: 20230512
  Receipt Date: 20230512
  Transmission Date: 20230722
  Serious: No
  Sender: FDA-Public Use
  Company Number: US-GLAXOSMITHKLINE-US2023064873

PATIENT
  Age: 76 Year
  Sex: Male

DRUGS (2)
  1. ZEJULA [Suspect]
     Active Substance: NIRAPARIB
     Indication: Soft tissue sarcoma
     Dosage: 100 MG, BID
     Dates: start: 20230317
  2. ZEJULA [Suspect]
     Active Substance: NIRAPARIB
     Indication: Malignant connective tissue neoplasm

REACTIONS (1)
  - Off label use [Unknown]

NARRATIVE: CASE EVENT DATE: 20230317
